FAERS Safety Report 9988083 (Version 2)
Quarter: 2014Q1

REPORT INFORMATION
  Report Type: Spontaneous
  Country: CA (occurrence: CA)
  Receive Date: 20140308
  Receipt Date: 20140313
  Transmission Date: 20141002
  Serious: Yes (Hospitalization, Other)
  Sender: FDA-Public Use
  Company Number: CA-ROCHE-1360978

PATIENT
  Age: 52 Year
  Sex: Male

DRUGS (2)
  1. CYTOVENE [Suspect]
     Indication: LUNG TRANSPLANT
     Route: 042
     Dates: start: 20131123, end: 20131207
  2. VALCYTE [Suspect]
     Indication: LUNG TRANSPLANT
     Route: 048
     Dates: start: 20131208

REACTIONS (2)
  - Renal failure [Recovered/Resolved]
  - Hyperammonaemia [Recovered/Resolved]
